FAERS Safety Report 6059801-9 (Version None)
Quarter: 2009Q1

REPORT INFORMATION
  Report Type: 
  Country: None (occurrence: None)
  Receive Date: 20090130
  Receipt Date: 20080715
  Transmission Date: 20090719
  Serious: No
  Sender: FDA-Public Use
  Company Number: US-ABBOTT-08P-163-0463595-00

PATIENT
  Sex: Female
  Weight: 83.99 kg

DRUGS (6)
  1. LUPRON DEPOT [Suspect]
     Indication: INFERTILITY FEMALE
     Route: 050
     Dates: start: 20080729, end: 20080729
  2. LUPRON DEPOT [Suspect]
     Indication: INFERTILITY FEMALE
     Route: 050
     Dates: start: 20080101, end: 20080501
  3. LUPRON DEPOT [Suspect]
     Dosage: 30 MG MONTHLY FOR 4 MONTHS = 7.5 MONTHLY
     Dates: start: 20080629
  4. CYTROHEPTADINE [Concomitant]
     Indication: MIGRAINE
     Dosage: 4 MG AT BEDTIME
     Route: 048
     Dates: start: 20080601
  5. ZOMID [Concomitant]
     Indication: MIGRAINE
     Route: 048
     Dates: start: 20080301
  6. MERLAX [Concomitant]
     Indication: CONSTIPATION
     Route: 048
     Dates: start: 20060101

REACTIONS (3)
  - DRUG DISPENSING ERROR [None]
  - HOT FLUSH [None]
  - OVERDOSE [None]
